FAERS Safety Report 14351786 (Version 1)
Quarter: 2018Q1

REPORT INFORMATION
  Report Type: Report from Study
  Country: None (occurrence: IL)
  Receive Date: 20180104
  Receipt Date: 20180104
  Transmission Date: 20180509
  Serious: Yes (Death)
  Sender: FDA-Public Use
  Company Number: IL-ABBVIE-18K-082-2211527-00

PATIENT
  Sex: Male

DRUGS (1)
  1. DUODOPA [Suspect]
     Active Substance: CARBIDOPA\LEVODOPA
     Indication: PARKINSON^S DISEASE
     Dosage: MORNING DOSE 11ML,?CONTINUOUS DOSE 1.6ML/HOUR,?EXTRA DOSE 1ML.
     Route: 050
     Dates: start: 20170723

REACTIONS (2)
  - Pulmonary embolism [Fatal]
  - Arrhythmia [Fatal]
